FAERS Safety Report 12209016 (Version 3)
Quarter: 2016Q4

REPORT INFORMATION
  Report Type: Spontaneous
  Country: US (occurrence: US)
  Receive Date: 20160324
  Receipt Date: 20161006
  Transmission Date: 20170207
  Serious: No
  Sender: FDA-Public Use
  Company Number: US-SHIONOGI, INC-2016000011

PATIENT
  Age: 64 Year
  Sex: Female
  Weight: 49.89 kg

DRUGS (4)
  1. OSPHENA [Suspect]
     Active Substance: OSPEMIFENE
     Indication: OFF LABEL USE
  2. OSPHENA [Suspect]
     Active Substance: OSPEMIFENE
     Indication: VULVITIS
  3. OSPHENA [Suspect]
     Active Substance: OSPEMIFENE
     Indication: VULVOVAGINAL PAIN
  4. OSPHENA [Suspect]
     Active Substance: OSPEMIFENE
     Indication: VULVOVAGINAL DISCOMFORT
     Dosage: 60 MG, QD
     Route: 065
     Dates: start: 20151012

REACTIONS (4)
  - Constipation [Not Recovered/Not Resolved]
  - Gastrointestinal oedema [Unknown]
  - Off label use [Unknown]
  - Vaginal disorder [Unknown]

NARRATIVE: CASE EVENT DATE: 20151012
